FAERS Safety Report 21160698 (Version 1)
Quarter: 2022Q3

REPORT INFORMATION
  Report Type: Spontaneous
  Country: FR (occurrence: FR)
  Receive Date: 20220802
  Receipt Date: 20220802
  Transmission Date: 20221027
  Serious: Yes (Death)
  Sender: FDA-Public Use
  Company Number: FR-SHIONOGI, INC-2022000727

PATIENT
  Age: 8 Decade
  Weight: 78 kg

DRUGS (14)
  1. FETROJA [Suspect]
     Active Substance: CEFIDEROCOL SULFATE TOSYLATE
     Indication: Pseudomonas infection
     Dosage: 2 G
     Route: 042
  2. FETROJA [Suspect]
     Active Substance: CEFIDEROCOL SULFATE TOSYLATE
     Indication: CNS ventriculitis
     Dosage: 2 G, 6 HOUR
     Route: 042
  3. FETROJA [Suspect]
     Active Substance: CEFIDEROCOL SULFATE TOSYLATE
     Indication: Device related infection
     Dosage: 2 G, 8 HOUR
     Route: 042
  4. AMIKACIN [Suspect]
     Active Substance: AMIKACIN
     Indication: Pseudomonas infection
     Dosage: 30 MG, 1 PER 1 DAY
  5. AMIKACIN [Suspect]
     Active Substance: AMIKACIN
     Indication: CNS ventriculitis
  6. AMIKACIN [Suspect]
     Active Substance: AMIKACIN
     Indication: Device related infection
  7. COLISTIN [Suspect]
     Active Substance: COLISTIN
     Indication: Pseudomonas infection
     Dosage: 10 MG, 1 PER 1 DAY
  8. COLISTIN [Suspect]
     Active Substance: COLISTIN
     Indication: Device related infection
  9. COLISTIN [Suspect]
     Active Substance: COLISTIN
     Indication: CNS ventriculitis
  10. MEROPENEM [Concomitant]
     Active Substance: MEROPENEM
     Indication: Pseudomonas aeruginosa meningitis
     Dosage: 2 G, 8 HOUR
     Route: 065
  11. MEROPENEM [Concomitant]
     Active Substance: MEROPENEM
     Dosage: UNK
     Route: 065
  12. CIPROFLOXACIN [Concomitant]
     Active Substance: CIPROFLOXACIN
     Indication: Pseudomonas aeruginosa meningitis
     Dosage: 750 MG, 12 HOUR
     Route: 065
  13. CIPROFLOXACIN [Concomitant]
     Active Substance: CIPROFLOXACIN
     Dosage: UNK
     Route: 065
  14. LEVETIRACETAM [Concomitant]
     Active Substance: LEVETIRACETAM
     Indication: Status epilepticus
     Route: 065

REACTIONS (3)
  - Meningitis candida [Fatal]
  - Incorrect product administration duration [Unknown]
  - Drug effect less than expected [Unknown]
